FAERS Safety Report 13748794 (Version 2)
Quarter: 2017Q3

REPORT INFORMATION
  Report Type: Spontaneous
  Country: GB (occurrence: GB)
  Receive Date: 20170713
  Receipt Date: 20170716
  Transmission Date: 20171127
  Serious: Yes (Hospitalization)
  Sender: FDA-Public Use
  Company Number: GB-ROCHE-1960710

PATIENT
  Age: 85 Year
  Sex: Male

DRUGS (1)
  1. GAZYVARO [Suspect]
     Active Substance: OBINUTUZUMAB
     Indication: PRODUCT USED FOR UNKNOWN INDICATION
     Route: 065

REACTIONS (1)
  - Colitis [Unknown]
